FAERS Safety Report 17980773 (Version 2)
Quarter: 2022Q1

REPORT INFORMATION
  Report Type: Other
  Country: IT (occurrence: IT)
  Receive Date: 20200704
  Receipt Date: 20220316
  Transmission Date: 20220423
  Serious: Yes (Hospitalization)
  Sender: FDA-Public Use
  Company Number: None

PATIENT
  Age: 19 Year
  Sex: Male

DRUGS (5)
  1. VALIUM [Suspect]
     Active Substance: DIAZEPAM
     Indication: Product used for unknown indication
     Dosage: FORM STRENGTH: 5 MG/ML?MOST RECENT DOSE ON 13/JUN/2020
     Route: 048
     Dates: start: 20200101
  2. HALOPERIDOL DECANOATE [Suspect]
     Active Substance: HALOPERIDOL DECANOATE
     Indication: Product used for unknown indication
     Dosage: FORM STRENGTH: 50 MG/ML?MOST RECENT DOSE ON 13/JUN/2020
     Route: 030
     Dates: start: 20200525
  3. ZYPADHERA [Suspect]
     Active Substance: OLANZAPINE PAMOATE
     Indication: Product used for unknown indication
     Dosage: MOST RECENT DOSE ON 13/JUN/2020
     Route: 065
     Dates: start: 20200609
  4. AKINETON [Suspect]
     Active Substance: BIPERIDEN HYDROCHLORIDE
     Indication: Product used for unknown indication
     Dosage: MOST RECENT DOSE ON 13/JUN/2020
     Route: 065
     Dates: start: 20200101
  5. VALPROATE SODIUM [Suspect]
     Active Substance: VALPROATE SODIUM
     Indication: Product used for unknown indication
     Dosage: MOST RECENT DOSE ON 13/JUN/2020
     Route: 065
     Dates: start: 20200101

REACTIONS (2)
  - Psychomotor hyperactivity [Unknown]
  - Sopor [Unknown]

NARRATIVE: CASE EVENT DATE: 20200613
